FAERS Safety Report 9500643 (Version 1)
Quarter: 2013Q1

REPORT INFORMATION
  Report Type: Spontaneous
  Country: US (occurrence: None)
  Receive Date: 20130107
  Receipt Date: 20130107
  Transmission Date: 20140127
  Serious: No
  Sender: FDA-Public Use
  Company Number: PHEH201US017223

PATIENT
  Age: 38 Year
  Sex: Female

DRUGS (16)
  1. GILENYA (FTY) CAPSULE, 0.5 MG [Suspect]
     Indication: MULTIPLE SCLEROSIS
     Route: 048
     Dates: start: 201203
  2. DEPO-PROVERA (MEDROXYPROGESTERONE ACETATE) [Concomitant]
  3. ENALAPRIL MALEATE (ENALAPRIL MALEATE) [Concomitant]
  4. SUMATRIPTAN (SUMATRIPTAN) [Concomitant]
  5. LORAZEPAM (LORAZEPAM) [Concomitant]
  6. BACLOFEN (BACLOFEN) [Concomitant]
  7. SIMVASTATIN (SIMVASTATIN) [Concomitant]
  8. NEXIUM (ESOMEPRAZOLE MAGNESIUM) [Concomitant]
  9. FEXOFENADINE HYDROCHLORIDE (FEXOFENADINE HYDROCHLORIDE) [Concomitant]
  10. DOCUSATE (DOCUSATE) [Concomitant]
  11. DOXYLAMINE SUCCATE (DOXYLAMINE SUCCINATE) [Concomitant]
  12. VITAMIN D3 (COLECALCIFEROL) [Concomitant]
  13. DITROPAN XL (OXYBUTYNIN HYDROCHLORIDE) [Concomitant]
  14. CARISOPRODOL (CARISOPRODOL) [Concomitant]
  15. HYDROCODONE COMPOUND (HOMATROPINE METHYLBROMIDE, HYDROCODONE BITARTRATE) SURUP [Concomitant]
  16. CYMBALTA (DULOXETINE HYDROCHLORIDE) [Concomitant]

REACTIONS (5)
  - Insomnia [None]
  - Pain [None]
  - Depressed mood [None]
  - Migraine [None]
  - Decreased interest [None]
